FAERS Safety Report 5696312-4 (Version None)
Quarter: 2008Q2

REPORT INFORMATION
  Report Type: 
  Country: None (occurrence: None)
  Receive Date: 20080407
  Receipt Date: 20080326
  Transmission Date: 20081010
  Serious: Yes (Other)
  Sender: FDA-Public Use
  Company Number: US-PFIZER INC-2008009782

PATIENT
  Sex: Female
  Weight: 92.5 kg

DRUGS (2)
  1. CHANTIX [Suspect]
     Indication: SMOKING CESSATION THERAPY
     Route: 048
     Dates: start: 20080103, end: 20080128
  2. HYDROCHLOROTHIAZIDE [Concomitant]
     Indication: HYPERTENSION
     Dosage: DAILY DOSE:12.5MG

REACTIONS (8)
  - CERUMEN IMPACTION [None]
  - DIZZINESS [None]
  - EAR DISCOMFORT [None]
  - MENIERE'S DISEASE [None]
  - NAUSEA [None]
  - TINNITUS [None]
  - VERTIGO [None]
  - VOMITING [None]
